FAERS Safety Report 22106814 (Version 1)
Quarter: 2023Q1

REPORT INFORMATION
  Report Type: Report from Study
  Country: US (occurrence: US)
  Receive Date: 20230317
  Receipt Date: 20230317
  Transmission Date: 20230417
  Serious: Yes (Hospitalization)
  Sender: FDA-Public Use
  Company Number: US-SA-SAC20230309000004

PATIENT

DRUGS (2)
  1. DUVELISIB [Suspect]
     Active Substance: DUVELISIB
     Indication: Squamous cell carcinoma of head and neck
     Dosage: UNK
     Route: 065
  2. DOCETAXEL [Suspect]
     Active Substance: DOCETAXEL
     Indication: Squamous cell carcinoma of head and neck
     Dosage: UNK
     Route: 065

REACTIONS (3)
  - Acute kidney injury [Unknown]
  - Rash maculo-papular [Unknown]
  - Diarrhoea [Unknown]
